FAERS Safety Report 18721665 (Version 1)
Quarter: 2021Q1

REPORT INFORMATION
  Report Type: Report from Study
  Country: AR (occurrence: AR)
  Receive Date: 20210110
  Receipt Date: 20210110
  Transmission Date: 20210419
  Serious: Yes (Other)
  Sender: FDA-Public Use
  Company Number: AR-JNJFOC-20210111243

PATIENT
  Age: 35 Year
  Sex: Female
  Weight: 67 kg

DRUGS (1)
  1. STELARA [Suspect]
     Active Substance: USTEKINUMAB
     Indication: CROHN^S DISEASE
     Route: 058
     Dates: start: 20200122

REACTIONS (4)
  - Product use issue [Unknown]
  - Off label use [Unknown]
  - Crohn^s disease [Not Recovered/Not Resolved]
  - Pyoderma [Not Recovered/Not Resolved]

NARRATIVE: CASE EVENT DATE: 20200122
